FAERS Safety Report 16383196 (Version 1)
Quarter: 2019Q2

REPORT INFORMATION
  Report Type: Spontaneous
  Country: CA (occurrence: CA)
  Receive Date: 20190603
  Receipt Date: 20190603
  Transmission Date: 20190711
  Serious: Yes (Other)
  Sender: FDA-Public Use
  Company Number: CA-PFIZER INC-2019231567

PATIENT
  Age: 52 Year
  Sex: Female
  Weight: 57 kg

DRUGS (1)
  1. EFFEXOR XR [Suspect]
     Active Substance: VENLAFAXINE HYDROCHLORIDE
     Dosage: 75 MG, 1 EVERY 1 HOUR
     Route: 048

REACTIONS (8)
  - Overdose [Unknown]
  - Asthenia [Unknown]
  - Headache [Unknown]
  - Chest pain [Unknown]
  - Chills [Unknown]
  - Fatigue [Unknown]
  - Dyspnoea [Unknown]
  - Off label use [Unknown]
